FAERS Safety Report 5382131-5 (Version None)
Quarter: 2007Q3

REPORT INFORMATION
  Report Type: 
  Country: None (occurrence: None)
  Receive Date: 20070702
  Receipt Date: 20070620
  Transmission Date: 20080115
  Serious: Yes (Death)
  Sender: FDA-Public Use
  Company Number: 2007001149

PATIENT
  Sex: Male

DRUGS (1)
  1. TARCEVA [Suspect]
     Dosage: (QD), ORAL
     Route: 048
     Dates: start: 20070501

REACTIONS (1)
  - CANDIDIASIS [None]
